FAERS Safety Report 9540014 (Version 1)
Quarter: 2013Q3

REPORT INFORMATION
  Report Type: Spontaneous
  Country: US (occurrence: US)
  Receive Date: 20130920
  Receipt Date: 20130920
  Transmission Date: 20140515
  Serious: Yes (Hospitalization)
  Sender: FDA-Public Use
  Company Number: US-JNJFOC-20130906395

PATIENT
  Age: 83 Year
  Sex: Male
  Weight: 90.72 kg

DRUGS (6)
  1. XARELTO [Suspect]
     Indication: CARDIAC FAILURE CONGESTIVE
     Route: 048
     Dates: end: 20130910
  2. XARELTO [Suspect]
     Indication: CEREBROVASCULAR ACCIDENT PROPHYLAXIS
     Route: 048
     Dates: end: 20130910
  3. XARELTO [Suspect]
     Indication: ATRIAL FIBRILLATION
     Route: 048
     Dates: end: 20130910
  4. LASIX [Concomitant]
     Indication: FLUID RETENTION
     Route: 065
  5. BABY ASPIRIN [Concomitant]
     Route: 065
  6. POTASSIUM [Concomitant]
     Route: 065

REACTIONS (6)
  - Pulmonary thrombosis [Unknown]
  - Blood creatinine increased [Unknown]
  - Pulse absent [Unknown]
  - Skin disorder [Unknown]
  - Local swelling [Recovering/Resolving]
  - Contusion [Unknown]
